FAERS Safety Report 19591736 (Version 1)
Quarter: 2021Q3

REPORT INFORMATION
  Report Type: Spontaneous
  Country: AU (occurrence: AU)
  Receive Date: 20210721
  Receipt Date: 20210721
  Transmission Date: 20211014
  Serious: Yes (Other)
  Sender: FDA-Public Use
  Company Number: AU-009507513-2107AUS006167

PATIENT
  Age: 63 Year
  Sex: Male

DRUGS (9)
  1. MYCOPHENOLATE MOFETIL. [Suspect]
     Active Substance: MYCOPHENOLATE MOFETIL
     Indication: GRAFT VERSUS HOST DISEASE
     Dosage: 1000 MILLIGRAM, INTERVAL 1 DAY
     Dates: start: 20200413
  2. ETANERCEPT [Suspect]
     Active Substance: ETANERCEPT
     Indication: GRAFT VERSUS HOST DISEASE
     Dosage: UNK
     Dates: end: 202001
  3. PREDNISOLONE. [Suspect]
     Active Substance: PREDNISOLONE
     Indication: GRAFT VERSUS HOST DISEASE IN SKIN
     Dosage: 37.5 MILLIGRAM, INTERVAL 1 DAY
     Dates: start: 20200413
  4. BUDESONIDE. [Suspect]
     Active Substance: BUDESONIDE
     Indication: GRAFT VERSUS HOST DISEASE
     Dosage: 9 MILLIGRAM, INTERVAL 1 DAY
  5. POSACONAZOLE [Suspect]
     Active Substance: POSACONAZOLE
     Indication: GRAFT VERSUS HOST DISEASE IN SKIN
     Dosage: 300 MILLIGRAM, INTERVAL 1 DAY
     Dates: start: 201911
  6. CICLOSPORIN [Suspect]
     Active Substance: CYCLOSPORINE
     Indication: TRANSPLANT
     Dosage: 200 MILLIGRAM, INTERVAL 1 DAY
  7. ELTROMBOPAG [Suspect]
     Active Substance: ELTROMBOPAG
     Indication: GRAFT VERSUS HOST DISEASE
     Dosage: 500 MILLIGRAM, INTERVAL 1 DAY
     Dates: start: 20200428
  8. POSACONAZOLE [Suspect]
     Active Substance: POSACONAZOLE
     Dosage: 300 MILLIGRAM, INTERVAL 1 DAY
     Dates: start: 201912
  9. JAKAVI [Suspect]
     Active Substance: RUXOLITINIB
     Indication: GRAFT VERSUS HOST DISEASE
     Dosage: 5 MILLIGRAM

REACTIONS (6)
  - Weight decreased [Unknown]
  - Diarrhoea [Unknown]
  - Graft versus host disease [Unknown]
  - Drug resistance [Unknown]
  - Product use in unapproved indication [Unknown]
  - Treatment failure [Unknown]

NARRATIVE: CASE EVENT DATE: 201911
